FAERS Safety Report 15556521 (Version 4)
Quarter: 2019Q1

REPORT INFORMATION
  Report Type: Report from Study
  Country: AU (occurrence: AU)
  Receive Date: 20181026
  Receipt Date: 20190121
  Transmission Date: 20190417
  Serious: Yes (Hospitalization)
  Sender: FDA-Public Use
  Company Number: AU-PFIZER INC-2018404311

PATIENT
  Age: 47 Year
  Sex: Female
  Weight: 64.3 kg

DRUGS (7)
  1. OLMESARTAN [Concomitant]
     Active Substance: OLMESARTAN
     Dosage: 20 MG, 1X/DAY
     Route: 048
     Dates: start: 20171013, end: 20180702
  2. BIO MAGNESIUM [MAGNESIUM] [Concomitant]
     Indication: MUSCLE SPASMS
     Dosage: 1 DF, 1X/DAY
     Route: 048
     Dates: start: 20180124
  3. PALBOCICLIB [Suspect]
     Active Substance: PALBOCICLIB
     Indication: BREAST CANCER
     Dosage: 125 MG, 1X/DAY
     Route: 048
     Dates: start: 20170906, end: 20180925
  4. OLMESARTAN [Concomitant]
     Active Substance: OLMESARTAN
     Indication: HYPERTENSION
     Dosage: 20 MG, 1X/DAY
     Route: 048
     Dates: start: 2011, end: 20170907
  5. PROBIOTIC [BIFIDOBACTERIUM LACTIS] [Concomitant]
     Indication: CONSTIPATION
     Dosage: UNK
     Route: 048
     Dates: start: 201708, end: 20170910
  6. TAMOXIFEN [Concomitant]
     Active Substance: TAMOXIFEN
     Indication: BREAST CANCER
     Dosage: 20 MG, 1X/DAY
     Route: 048
     Dates: start: 20170508
  7. OLMESARTAN [Concomitant]
     Active Substance: OLMESARTAN
     Dosage: 10 MG, 1X/DAY
     Route: 048
     Dates: start: 20180703

REACTIONS (1)
  - Pulmonary haemorrhage [Recovered/Resolved]

NARRATIVE: CASE EVENT DATE: 20181003
